FAERS Safety Report 4305216-0 (Version None)
Quarter: 2004Q1

REPORT INFORMATION
  Report Type: 
  Country: None (occurrence: None)
  Receive Date: 20040226
  Receipt Date: 20010913
  Transmission Date: 20041129
  Serious: Yes (Disabling)
  Sender: FDA-Public Use
  Company Number: WAES 01098541

PATIENT
  Age: 39 Year
  Sex: Female
  Weight: 95 kg

DRUGS (2)
  1. ERYTHROMYCIN ETHYLSUCCINATE [Suspect]
     Indication: LOWER RESPIRATORY TRACT INFECTION
     Route: 048
     Dates: start: 19981123, end: 19981126
  2. SINGULAIR [Suspect]
     Indication: ASTHMA
     Route: 048
     Dates: start: 19981027, end: 19981126

REACTIONS (13)
  - ASPARTATE AMINOTRANSFERASE INCREASED [None]
  - ASTHMA [None]
  - BLOOD ALKALINE PHOSPHATASE INCREASED [None]
  - BLOOD BILIRUBIN INCREASED [None]
  - CHILLS [None]
  - CHROMATURIA [None]
  - GAMMA-GLUTAMYLTRANSFERASE INCREASED [None]
  - HEPATOTOXICITY [None]
  - MUSCLE CRAMP [None]
  - MYALGIA [None]
  - NAUSEA [None]
  - PSORIASIS [None]
  - UPPER RESPIRATORY TRACT INFECTION [None]
